FAERS Safety Report 6855140-4 (Version None)
Quarter: 2010Q3

REPORT INFORMATION
  Report Type: 
  Country: None (occurrence: None)
  Receive Date: 20100717
  Receipt Date: 20091112
  Transmission Date: 20110219
  Serious: No
  Sender: FDA-Public Use
  Company Number: US-PFIZER INC-2008001436

PATIENT
  Sex: Female

DRUGS (6)
  1. CHANTIX [Suspect]
     Indication: SMOKING CESSATION THERAPY
     Dosage: 0.5 MG, 1X/DAY
     Route: 048
     Dates: start: 20070101
  2. OXYCODONE [Concomitant]
     Indication: NEUROPATHY PERIPHERAL
     Dosage: 15 MG, 3X/DAY
     Route: 048
     Dates: start: 20040101
  3. SOMA [Concomitant]
     Indication: NEUROPATHY PERIPHERAL
     Dosage: 325 MG, 4X/DAY
     Route: 048
     Dates: start: 20040101
  4. SYNTHROID [Concomitant]
     Indication: THYROID DISORDER
     Dosage: 5 UG, 1X/DAY
     Route: 048
     Dates: start: 20040101
  5. SEROQUEL [Concomitant]
     Indication: BIPOLAR DISORDER
     Dosage: 100 MG, 1X/DAY
     Route: 048
  6. VALIUM [Concomitant]
     Indication: BIPOLAR DISORDER
     Dosage: 5 MG, 3X/DAY

REACTIONS (1)
  - NAUSEA [None]
